FAERS Safety Report 13548311 (Version 1)
Quarter: 2017Q2

REPORT INFORMATION
  Report Type: Spontaneous
  Country: US (occurrence: US)
  Receive Date: 20170516
  Receipt Date: 20170516
  Transmission Date: 20170830
  Serious: No
  Sender: FDA-Public Use
  Company Number: US-JNJFOC-20170317723

PATIENT
  Age: 72 Year
  Sex: Female
  Weight: 81.65 kg

DRUGS (6)
  1. FISH OIL [Concomitant]
     Active Substance: FISH OIL
     Indication: NUTRITIONAL SUPPLEMENTATION
     Route: 065
  2. WOMENS ROGAINE [Suspect]
     Active Substance: MINOXIDIL
     Route: 061
  3. VITAMIN D [Concomitant]
     Active Substance: CHOLECALCIFEROL
     Indication: PRODUCT USED FOR UNKNOWN INDICATION
     Route: 065
  4. VITAMIN C [Concomitant]
     Active Substance: ASCORBIC ACID
     Indication: PRODUCT USED FOR UNKNOWN INDICATION
     Route: 065
  5. WOMENS ROGAINE [Suspect]
     Active Substance: MINOXIDIL
     Indication: ALOPECIA
     Dosage: UP TO THE LINE, 1-2X DAILY
     Route: 061
     Dates: start: 201702, end: 20170314
  6. OSTEO-BI-FLEX [Concomitant]
     Indication: PRODUCT USED FOR UNKNOWN INDICATION
     Route: 065

REACTIONS (2)
  - Inappropriate schedule of drug administration [Not Recovered/Not Resolved]
  - Erythema [Not Recovered/Not Resolved]
